FAERS Safety Report 7446995-3 (Version None)
Quarter: 2011Q2

REPORT INFORMATION
  Report Type: 
  Country: None (occurrence: None)
  Receive Date: 20110429
  Receipt Date: 20110427
  Transmission Date: 20111010
  Serious: Yes (Death, Other)
  Sender: FDA-Public Use
  Company Number: PHHY2011FR35233

PATIENT
  Age: 59 Year
  Sex: Female

DRUGS (6)
  1. ENDOXAN [Suspect]
     Dosage: 2500 MG, UNK
     Route: 042
     Dates: start: 20110104
  2. CELLCEPT [Concomitant]
  3. METHYLPREDNISOLONE [Concomitant]
     Dosage: 50 MG, UNK
     Dates: start: 20110114
  4. MYFORTIC [Suspect]
     Indication: PROPHYLAXIS AGAINST GRAFT VERSUS HOST DISEASE
     Dosage: 720 MG, TID
     Route: 048
     Dates: start: 20110107, end: 20110125
  5. NEORAL [Suspect]
     Indication: PROPHYLAXIS AGAINST GRAFT VERSUS HOST DISEASE
     Dosage: 110 MG, BID
     Route: 048
     Dates: start: 20110107, end: 20110113
  6. FLUDARABINE [Suspect]
     Dosage: 40 MG/M2, UNK
     Dates: start: 20110104, end: 20110108

REACTIONS (11)
  - DYSARTHRIA [None]
  - LEUKOENCEPHALOPATHY [None]
  - METABOLIC ENCEPHALOPATHY [None]
  - HERPES SIMPLEX [None]
  - PYREXIA [None]
  - CONFUSIONAL STATE [None]
  - COMA [None]
  - RENAL DISORDER [None]
  - COUGH [None]
  - SPEECH DISORDER [None]
  - BLOOD PRESSURE SYSTOLIC INCREASED [None]
